FAERS Safety Report 5904634-4 (Version None)
Quarter: 2008Q3

REPORT INFORMATION
  Report Type: 
  Country: None (occurrence: None)
  Receive Date: 20080930
  Receipt Date: 20080930
  Transmission Date: 20090109
  Serious: No
  Sender: FDA-Public Use
  Company Number: None

PATIENT
  Age: 52 Year
  Sex: Male
  Weight: 58.47 kg

DRUGS (1)
  1. NALTREXONE [Suspect]
     Dosage: 380 MG OTHER IM
     Route: 030
     Dates: start: 20080429, end: 20080915

REACTIONS (1)
  - INJECTION SITE PAIN [None]
